FAERS Safety Report 4663209-8 (Version None)
Quarter: 2005Q2

REPORT INFORMATION
  Report Type: 
  Country: None (occurrence: None)
  Receive Date: 20050516
  Receipt Date: 20050503
  Transmission Date: 20051028
  Serious: Yes (Other)
  Sender: FDA-Public Use
  Company Number: GXKR2005GB00994

PATIENT
  Age: 9 Year
  Sex: Male
  Weight: 25.9 kg

DRUGS (7)
  1. CLONIDINE [Suspect]
     Indication: TOURETTE'S DISORDER
     Dosage: SEE IMAGE
     Route: 048
     Dates: end: 20050331
  2. CLONIDINE [Suspect]
     Indication: TOURETTE'S DISORDER
     Dosage: SEE IMAGE
     Route: 048
     Dates: start: 20050331, end: 20050404
  3. CLONIDINE [Suspect]
     Indication: TOURETTE'S DISORDER
     Dosage: SEE IMAGE
     Route: 048
     Dates: start: 20050123
  4. CHLORPHENIRAMINE TAB [Concomitant]
  5. SEREVENT [Concomitant]
  6. VENTOLIN [Concomitant]
  7. FLUTIDE FOR INHALATION (FLUTICASONE PROPIONATE) [Concomitant]

REACTIONS (4)
  - ASTHMA [None]
  - HYPERSENSITIVITY [None]
  - LACTOSE INTOLERANCE [None]
  - RASH GENERALISED [None]
